FAERS Safety Report 6029432-5 (Version None)
Quarter: 2009Q1

REPORT INFORMATION
  Report Type: 
  Country: None (occurrence: None)
  Receive Date: 20090105
  Receipt Date: 20081219
  Transmission Date: 20090719
  Serious: Yes (Other)
  Sender: FDA-Public Use
  Company Number: 2008AP003305

PATIENT
  Age: 52 Year
  Sex: Male

DRUGS (3)
  1. BENAZEPRIL HCL   TABLETS (20 MG) [Suspect]
     Indication: HYPERTENSION
     Dosage: 20 MG; QD; PO
     Route: 048
     Dates: start: 20081104
  2. BENAZEPRIL HYDROCHLORIDE [Concomitant]
  3. ROSUVASTATIN CALCIUM [Concomitant]

REACTIONS (4)
  - BLOOD PRESSURE INADEQUATELY CONTROLLED [None]
  - DRUG INEFFECTIVE [None]
  - TACHYCARDIA [None]
  - THERAPEUTIC RESPONSE UNEXPECTED WITH DRUG SUBSTITUTION [None]
